FAERS Safety Report 12523057 (Version 1)
Quarter: 2016Q3

REPORT INFORMATION
  Report Type: Spontaneous
  Country: DE (occurrence: DE)
  Receive Date: 20160701
  Receipt Date: 20160701
  Transmission Date: 20161109
  Serious: Yes (Other)
  Sender: FDA-Public Use
  Company Number: PHHY2016DE090827

PATIENT
  Age: 64 Year
  Sex: Male
  Weight: 80 kg

DRUGS (1)
  1. ZOLEDRONATE [Suspect]
     Active Substance: ZOLEDRONIC ACID
     Indication: PLASMA CELL MYELOMA
     Dosage: UNK
     Route: 065
     Dates: start: 201310, end: 201411

REACTIONS (11)
  - Large intestinal stenosis [Unknown]
  - Anaemia [Unknown]
  - Pulmonary arterial pressure increased [Unknown]
  - Lung infiltration [Unknown]
  - Plasma cell myeloma recurrent [Unknown]
  - Upper respiratory tract infection [Unknown]
  - Pleural thickening [Unknown]
  - Bone marrow failure [Unknown]
  - Fall [Unknown]
  - Cervical vertebral fracture [Unknown]
  - Blood count abnormal [Unknown]

NARRATIVE: CASE EVENT DATE: 201411
